FAERS Safety Report 7951789-6 (Version None)
Quarter: 2011Q4

REPORT INFORMATION
  Report Type: 
  Country: None (occurrence: None)
  Receive Date: 20111130
  Receipt Date: 20111130
  Transmission Date: 20120403
  Serious: Yes (Hospitalization)
  Sender: FDA-Public Use
  Company Number: None

PATIENT
  Sex: Female
  Weight: 86 kg

DRUGS (2)
  1. CARBOPLATIN [Suspect]
     Dosage: 543 MG
     Dates: end: 20111005
  2. TAXOL [Suspect]
     Dosage: 306 MG
     Dates: end: 20111011

REACTIONS (5)
  - ENTEROCOCCAL BACTERAEMIA [None]
  - FEBRILE NEUTROPENIA [None]
  - MALAISE [None]
  - ENDOCARDITIS [None]
  - DEVICE RELATED INFECTION [None]
